FAERS Safety Report 9182173 (Version 2)
Quarter: 2013Q2

REPORT INFORMATION
  Report Type: Report from Study
  Country: JP (occurrence: JP)
  Receive Date: 20130322
  Receipt Date: 20130410
  Transmission Date: 20140414
  Serious: Yes (Hospitalization)
  Sender: FDA-Public Use
  Company Number: JP-009507513-1303JPN010331

PATIENT
  Age: 48 Year
  Sex: Female
  Weight: 68 kg

DRUGS (17)
  1. PEGINTRON [Suspect]
     Indication: CHRONIC HEPATITIS C
     Dosage: 1.5 MICROGRAM PER KILOGRAM, QW
     Route: 058
     Dates: start: 20120904, end: 20121205
  2. REBETOL [Suspect]
     Indication: CHRONIC HEPATITIS C
     Dosage: 800 MG, QD
     Route: 048
     Dates: start: 20120904, end: 20120926
  3. REBETOL [Suspect]
     Dosage: 600 MG, QD
     Route: 048
     Dates: start: 20120927, end: 20121128
  4. REBETOL [Suspect]
     Dosage: 800 MG, QD
     Route: 048
     Dates: start: 20121129, end: 20121205
  5. TELAVIC [Suspect]
     Indication: CHRONIC HEPATITIS C
     Dosage: 2250 MG, QD
     Route: 048
     Dates: start: 20120904, end: 20120918
  6. TELAVIC [Suspect]
     Dosage: 1500 MG, QD
     Route: 048
     Dates: start: 20120919, end: 20121128
  7. MAGMITT [Concomitant]
     Indication: CONSTIPATION
     Dosage: 990 MG, QD, FORMULATION POR
     Route: 048
  8. SENNOSIDES [Concomitant]
     Indication: CONSTIPATION
     Dosage: 12 MG, QD, FORMULATION: POR
     Route: 048
  9. ETIZOLAM [Concomitant]
     Indication: INSOMNIA
     Dosage: 1 MG, QD, FORMULATION: POR
     Route: 048
  10. LENDORMIN D [Concomitant]
     Indication: INSOMNIA
     Dosage: 0.25 MG, QD, FORMULATION: POR
     Route: 048
  11. PINATOS [Concomitant]
     Indication: DIZZINESS
     Dosage: 30 MG, QD
     Route: 048
  12. VIVIANT [Concomitant]
     Indication: OSTEOPOROSIS
     Dosage: 20 MG, QD, FORMULATION: POR
     Route: 048
     Dates: start: 20120904, end: 20121212
  13. XYZAL [Concomitant]
     Indication: PROPHYLAXIS
     Dosage: 10 MG, QD, FORMULATION: POR
     Route: 048
     Dates: start: 20120904, end: 20121212
  14. SELBEX [Concomitant]
     Indication: PROPHYLAXIS
     Dosage: 1.5 G, QD, FORMULATION: FGR
     Route: 048
     Dates: start: 20120904, end: 20121212
  15. PARIET [Concomitant]
     Indication: PROPHYLAXIS
     Dosage: 10 MG, QD, FORMULATION: POR
     Route: 048
     Dates: start: 20120921
  16. EURODIN (ESTAZOLAM) [Concomitant]
     Indication: INSOMNIA
     Dosage: 2 MG, QD, FORMULATION: POR
     Route: 048
     Dates: start: 20121206
  17. DORAL [Concomitant]
     Indication: INSOMNIA
     Dosage: 20 MG, QD, FORMULATION: POR
     Route: 048
     Dates: start: 20121214

REACTIONS (1)
  - Depression [Not Recovered/Not Resolved]
